FAERS Safety Report 26072756 (Version 2)
Quarter: 2025Q4

REPORT INFORMATION
  Report Type: Spontaneous
  Country: JP (occurrence: JP)
  Receive Date: 20251121
  Receipt Date: 20251208
  Transmission Date: 20260118
  Serious: Yes (Hospitalization, Other)
  Sender: GLAXOSMITHKLINE
  Company Number: JP-GSK-JP2025JPN149196

PATIENT
  Age: 51 Year
  Sex: Female

DRUGS (2)
  1. LAMICTAL [Suspect]
     Active Substance: LAMOTRIGINE
     Dosage: 1175 MG
  2. LACOSAMIDE [Suspect]
     Active Substance: LACOSAMIDE
     Dosage: 4600 MG

REACTIONS (7)
  - Sinus node dysfunction [Unknown]
  - Neurotoxicity [Recovering/Resolving]
  - Cardiotoxicity [Recovering/Resolving]
  - Suicide attempt [Unknown]
  - Shock [Unknown]
  - Seizure [Unknown]
  - Intentional overdose [Unknown]
